FAERS Safety Report 17440676 (Version 1)
Quarter: 2020Q1

REPORT INFORMATION
  Report Type: Spontaneous
  Country: US (occurrence: US)
  Receive Date: 20200220
  Receipt Date: 20200220
  Transmission Date: 20200409
  Serious: Yes (Hospitalization, Other)
  Sender: FDA-Public Use
  Company Number: US-PFIZER INC-2020071796

PATIENT
  Age: 72 Year
  Sex: Female
  Weight: 62.6 kg

DRUGS (3)
  1. OLMESARTAN MEDOXOMIL AND HYDROCHLOROTHIAZIDE [Concomitant]
     Active Substance: HYDROCHLOROTHIAZIDE\OLMESARTAN MEDOXOMIL
     Indication: BLOOD PRESSURE ABNORMAL
     Dosage: UNK, DAILY (40-25MG 1 TABLET BY MOUTH DAILY)
     Route: 048
  2. XELJANZ XR [Suspect]
     Active Substance: TOFACITINIB CITRATE
     Indication: RHEUMATOID ARTHRITIS
     Dosage: 11 MG, DAILY
     Route: 048
     Dates: start: 201908
  3. BYSTOLIC [Concomitant]
     Active Substance: NEBIVOLOL HYDROCHLORIDE
     Indication: BLOOD PRESSURE ABNORMAL
     Dosage: 20 MG, DAILY
     Route: 048
     Dates: start: 2019

REACTIONS (10)
  - Musculoskeletal discomfort [Unknown]
  - Stasis dermatitis [Recovering/Resolving]
  - Fall [Unknown]
  - Dyspnoea [Unknown]
  - Spinal fracture [Unknown]
  - Malaise [Recovering/Resolving]
  - Weight decreased [Unknown]
  - Poor peripheral circulation [Unknown]
  - Heart valve incompetence [Unknown]
  - Thrombosis [Unknown]

NARRATIVE: CASE EVENT DATE: 2019
